FAERS Safety Report 6501989-7 (Version None)
Quarter: 2009Q4

REPORT INFORMATION
  Report Type: 
  Country: None (occurrence: None)
  Receive Date: 20091204
  Receipt Date: 20091124
  Transmission Date: 20100525
  Serious: Yes (Other)
  Sender: FDA-Public Use
  Company Number: THYM-1001308

PATIENT
  Age: 10 Year
  Sex: Male
  Weight: 37.3 kg

DRUGS (5)
  1. THYMOGLOBULINE       (ANTI-THYMOCYTE GLOBULIN (RABBIT)) POWDER  SOLUTI [Suspect]
     Indication: DRUG USE FOR UNKNOWN INDICATION
     Dosage: 90 MG, QD, INTRAVENOUS
     Route: 042
     Dates: start: 20091110
  2. DIPHENHYDRAMINE HCL [Concomitant]
  3. SOLU-MEDROL [Concomitant]
  4. SANDIMMUNE [Concomitant]
  5. ZYLIUM (RANTIDINE HYDROCHLORIDE) [Concomitant]

REACTIONS (1)
  - DRUG HYPERSENSITIVITY [None]
